FAERS Safety Report 11841571 (Version 3)
Quarter: 2016Q1

REPORT INFORMATION
  Report Type: Spontaneous
  Country: GB (occurrence: GB)
  Receive Date: 20151216
  Receipt Date: 20160323
  Transmission Date: 20160526
  Serious: Yes (Hospitalization, Other)
  Sender: FDA-Public Use
  Company Number: GB-JNJFOC-20151209415

PATIENT
  Age: 49 Year
  Sex: Female

DRUGS (5)
  1. YONDELIS [Suspect]
     Active Substance: TRABECTEDIN
     Indication: METASTASES TO LUNG
     Dosage: TOTAL DOSE: 2.85 MG
     Route: 042
     Dates: start: 20151104
  2. YONDELIS [Suspect]
     Active Substance: TRABECTEDIN
     Indication: METASTATIC UTERINE CANCER
     Dosage: 4 CYCLES
     Route: 042
  3. YONDELIS [Suspect]
     Active Substance: TRABECTEDIN
     Indication: METASTASES TO LUNG
     Dosage: 4 CYCLES
     Route: 042
  4. DEXAMETHASONE. [Concomitant]
     Active Substance: DEXAMETHASONE
     Indication: PREMEDICATION
  5. YONDELIS [Suspect]
     Active Substance: TRABECTEDIN
     Indication: METASTATIC UTERINE CANCER
     Dosage: TOTAL DOSE: 2.85 MG
     Route: 042
     Dates: start: 20151104

REACTIONS (9)
  - Liver function test increased [Unknown]
  - Cough [Unknown]
  - Neutropenic sepsis [Unknown]
  - Myalgia [Unknown]
  - Chills [Unknown]
  - Pancytopenia [Unknown]
  - Fatigue [Unknown]
  - Blood creatine phosphokinase increased [Unknown]
  - Pyrexia [Unknown]
